FAERS Safety Report 26090995 (Version 1)
Quarter: 2025Q4

REPORT INFORMATION
  Report Type: Spontaneous
  Country: JP (occurrence: JP)
  Receive Date: 20251126
  Receipt Date: 20251126
  Transmission Date: 20260117
  Serious: Yes (Other)
  Sender: BEIGENE
  Company Number: JP-BEONE MEDICINES-BGN-2025-020810

PATIENT
  Age: 70 Year
  Sex: Male

DRUGS (4)
  1. TEVIMBRA [Suspect]
     Active Substance: TISLELIZUMAB-JSGR
     Indication: Product used for unknown indication
     Dosage: 200 MILLIGRAM
     Dates: start: 20250917, end: 20251112
  2. TEVIMBRA [Suspect]
     Active Substance: TISLELIZUMAB-JSGR
     Dosage: 200 MILLIGRAM
     Route: 041
     Dates: start: 20250917, end: 20251112
  3. TEVIMBRA [Suspect]
     Active Substance: TISLELIZUMAB-JSGR
     Dosage: 200 MILLIGRAM
     Route: 041
     Dates: start: 20250917, end: 20251112
  4. TEVIMBRA [Suspect]
     Active Substance: TISLELIZUMAB-JSGR
     Dosage: 200 MILLIGRAM
     Dates: start: 20250917, end: 20251112

REACTIONS (1)
  - Tumour perforation [Unknown]
